FAERS Safety Report 8368600-4 (Version None)
Quarter: 2012Q2

REPORT INFORMATION
  Report Type: 
  Country: None (occurrence: None)
  Receive Date: 20120518
  Receipt Date: 20120508
  Transmission Date: 20120825
  Serious: Yes (Hospitalization)
  Sender: FDA-Public Use
  Company Number: US-BIOGENIDEC-2012BI014718

PATIENT
  Age: 67 Year
  Sex: Female

DRUGS (7)
  1. TIZANDINE [Concomitant]
  2. ESCITALOPRAM [Concomitant]
     Route: 048
  3. TYSABRI [Suspect]
     Indication: MULTIPLE SCLEROSIS
     Route: 042
     Dates: start: 20111031
  4. PREDNISOLONE [Concomitant]
     Route: 031
  5. AMITRIPTYLINE HCL [Concomitant]
  6. BACLOFEN [Concomitant]
  7. OFLOXACIN [Concomitant]
     Route: 031

REACTIONS (2)
  - ASTHENIA [None]
  - HYPOTENSION [None]
